FAERS Safety Report 7102966-8 (Version None)
Quarter: 2010Q4

REPORT INFORMATION
  Report Type: 
  Country: None (occurrence: None)
  Receive Date: 20101115
  Receipt Date: 20101108
  Transmission Date: 20110411
  Serious: Yes (Life-Threatening, Hospitalization)
  Sender: FDA-Public Use
  Company Number: FR-JNJFOC-20101101962

PATIENT
  Sex: Male

DRUGS (10)
  1. RISPERDAL [Suspect]
     Indication: BIPOLAR DISORDER
     Route: 048
  2. HALDOL [Suspect]
     Indication: BIPOLAR DISORDER
     Route: 048
  3. LOXAPAC [Suspect]
     Indication: BIPOLAR DISORDER
     Route: 048
  4. LERCANIDIPINE [Concomitant]
     Indication: HYPERTENSION
     Route: 048
  5. LANTUS [Concomitant]
     Indication: DIABETES MELLITUS
     Route: 058
  6. NOVONORM [Concomitant]
     Indication: DIABETES MELLITUS
     Route: 048
  7. IMOVANE [Concomitant]
     Indication: INSOMNIA
     Route: 048
  8. XYZAL [Concomitant]
     Indication: HYPERSENSITIVITY
     Route: 048
  9. DEPAKOTE [Concomitant]
     Indication: BIPOLAR DISORDER
     Route: 048
  10. DEPAKOTE [Concomitant]
     Route: 048

REACTIONS (1)
  - TOXIC EPIDERMAL NECROLYSIS [None]
